FAERS Safety Report 19873113 (Version 1)
Quarter: 2021Q3

REPORT INFORMATION
  Report Type: Other
  Country: US (occurrence: US)
  Receive Date: 20210922
  Receipt Date: 20210922
  Transmission Date: 20211014
  Serious: No
  Sender: FDA-Public Use
  Company Number: US-ELITE LABORATORIES INC.-2021ELT00109

PATIENT
  Sex: Female
  Weight: 65.76 kg

DRUGS (3)
  1. OMEGA VITAMIN [Concomitant]
  2. UNSPECIFIED MULTIVITAMIN [Concomitant]
  3. DEXTROAMPHET SACCHARAT, AMPHET ASPARTATE, DEXTROAMPHET SULFATE AND AMPHET SULFAT [Suspect]
     Active Substance: AMPHETAMINE ASPARTATE\AMPHETAMINE SULFATE\DEXTROAMPHETAMINE SACCHARATE\DEXTROAMPHETAMINE SULFATE
     Indication: ATTENTION DEFICIT HYPERACTIVITY DISORDER
     Dosage: 20 MG, 3X/DAY
     Route: 048
     Dates: end: 202105

REACTIONS (6)
  - Lethargy [Recovering/Resolving]
  - Feeling abnormal [Recovering/Resolving]
  - Product substitution issue [Recovered/Resolved]
  - Blood triglycerides increased [Recovering/Resolving]
  - Blood cholesterol increased [Recovering/Resolving]
  - Mood altered [Recovering/Resolving]
